FAERS Safety Report 5666278-1 (Version None)
Quarter: 2008Q1

REPORT INFORMATION
  Report Type: 
  Country: None (occurrence: None)
  Receive Date: 20080314
  Receipt Date: 20071211
  Transmission Date: 20080703
  Serious: No
  Sender: FDA-Public Use
  Company Number: US-ABBOTT-07P-163-0430322-00

PATIENT
  Sex: Female
  Weight: 65.83 kg

DRUGS (1)
  1. HUMIRA [Suspect]
     Indication: ARTHRITIS
     Dates: start: 20050401, end: 20071209

REACTIONS (4)
  - PRURITUS [None]
  - RASH PAPULAR [None]
  - RASH PUSTULAR [None]
  - WOUND DRAINAGE [None]
